FAERS Safety Report 8283155-0 (Version None)
Quarter: 2012Q2

REPORT INFORMATION
  Report Type: 
  Country: None (occurrence: None)
  Receive Date: 20120413
  Receipt Date: 20120407
  Transmission Date: 20120825
  Serious: Yes (Other)
  Sender: FDA-Public Use
  Company Number: FR-GLAXOSMITHKLINE-B0794657A

PATIENT
  Sex: Male

DRUGS (2)
  1. SUMATRIPTAN SUCCINATE [Suspect]
     Indication: CLUSTER HEADACHE
     Dates: start: 20120301, end: 20120301
  2. ISOPTIN [Concomitant]
     Indication: CLUSTER HEADACHE

REACTIONS (2)
  - VISUAL ACUITY REDUCED [None]
  - MACULAR OEDEMA [None]
